FAERS Safety Report 15894866 (Version 1)
Quarter: 2019Q1

REPORT INFORMATION
  Report Type: Spontaneous
  Country: US (occurrence: US)
  Receive Date: 20190131
  Receipt Date: 20190131
  Transmission Date: 20190417
  Serious: No
  Sender: FDA-Public Use
  Company Number: US-PFIZER INC-2019035804

PATIENT
  Age: 71 Year
  Sex: Female
  Weight: 56.25 kg

DRUGS (3)
  1. EUCRISA [Suspect]
     Active Substance: CRISABOROLE
     Indication: SKIN EXFOLIATION
  2. EUCRISA [Suspect]
     Active Substance: CRISABOROLE
     Indication: SUNBURN
     Dosage: UNK, 1X/DAY (APPLY TOPICALLY TO THE AFFECTED AREA WITH A LIGHT COATING ONCE)
     Route: 061
     Dates: start: 20190122
  3. EUCRISA [Suspect]
     Active Substance: CRISABOROLE
     Indication: RASH MACULAR
     Dosage: UNK
     Route: 061

REACTIONS (1)
  - Application site pain [Recovering/Resolving]

NARRATIVE: CASE EVENT DATE: 20190122
